FAERS Safety Report 6639752-9 (Version None)
Quarter: 2010Q1

REPORT INFORMATION
  Report Type: 
  Country: None (occurrence: None)
  Receive Date: 20100318
  Receipt Date: 20100309
  Transmission Date: 20100710
  Serious: Yes (Other)
  Sender: FDA-Public Use
  Company Number: PHHY2009BR31633

PATIENT
  Age: 75 Year
  Sex: Female

DRUGS (3)
  1. DIOVAN AMLO [Suspect]
  2. DIOVAN [Suspect]
     Dosage: 160 MG
  3. WARFARIN SODIUM [Concomitant]

REACTIONS (3)
  - CATARACT OPERATION [None]
  - CORNEAL DEGENERATION [None]
  - VISUAL IMPAIRMENT [None]
